FAERS Safety Report 20531870 (Version 1)
Quarter: 2022Q1

REPORT INFORMATION
  Report Type: Spontaneous
  Country: SE (occurrence: None)
  Receive Date: 20220301
  Receipt Date: 20220301
  Transmission Date: 20220424
  Serious: Yes (Life-Threatening, Hospitalization)
  Sender: FDA-Public Use
  Company Number: 2022A083625

PATIENT
  Age: 60 Year
  Sex: Male

DRUGS (11)
  1. DAPAGLIFLOZIN [Suspect]
     Active Substance: DAPAGLIFLOZIN
     Indication: Type 2 diabetes mellitus
     Route: 048
     Dates: start: 20180412, end: 20220103
  2. SUMATRIPTAN [Concomitant]
     Active Substance: SUMATRIPTAN
     Dosage: 50.0MG INTERMITTENT
  3. ASPIRIN [Concomitant]
     Active Substance: ASPIRIN
  4. EZETIMIBE [Concomitant]
     Active Substance: EZETIMIBE
     Route: 065
  5. TOUJEO [Concomitant]
     Active Substance: INSULIN GLARGINE
  6. ENALAPRIL [Concomitant]
     Active Substance: ENALAPRIL
  7. ATORVASTATIN [Concomitant]
     Active Substance: ATORVASTATIN
  8. SILDENAFIL [Concomitant]
     Active Substance: SILDENAFIL
     Dosage: 50.0MG INTERMITTENT
  9. NITROLINGUAL [Concomitant]
     Active Substance: NITROGLYCERIN
     Dosage: 1-2 IF NEEDED0.8MG INTERMITTENT
  10. METOPROLOL [Concomitant]
     Active Substance: METOPROLOL
  11. FIASP [Concomitant]
     Active Substance: INSULIN ASPART
     Dosage: 3 UNK, DAILY. 22E FOR BREAKFAST, 15E FOR LUNCH, 15E FOR DINNER

REACTIONS (1)
  - Diabetic ketoacidosis [Recovered/Resolved]

NARRATIVE: CASE EVENT DATE: 20220103
